FAERS Safety Report 9000754 (Version 2)
Quarter: 2013Q1

REPORT INFORMATION
  Report Type: Spontaneous
  Country: US (occurrence: US)
  Receive Date: 20130107
  Receipt Date: 20130222
  Transmission Date: 20140127
  Serious: No
  Sender: FDA-Public Use
  Company Number: US-TEVA-376050USA

PATIENT
  Age: 63 Year
  Sex: Female
  Weight: 9.08 kg

DRUGS (20)
  1. TREANDA [Suspect]
     Route: 042
     Dates: start: 20121024
  2. TREANDA [Suspect]
     Route: 042
     Dates: start: 20121025
  3. TREANDA [Suspect]
     Route: 042
     Dates: start: 20121212
  4. TREANDA [Suspect]
     Route: 042
     Dates: start: 20121213
  5. RITUXIMAB [Concomitant]
  6. BORTIZEMIB [Concomitant]
  7. ACYCLOVIR [Concomitant]
  8. FLUCONAZOLE [Concomitant]
  9. BACTRIM DS [Concomitant]
  10. PENICILLIN [Concomitant]
  11. URSODIOL [Concomitant]
  12. SYNTHROID [Concomitant]
  13. CHOLECALCIFEROL [Concomitant]
  14. OMEPRAZOLE [Concomitant]
  15. ENOXAPARIN [Concomitant]
  16. FOLIC ACID [Concomitant]
  17. ONDANSETRON [Concomitant]
  18. ZOLPIDEM [Concomitant]
  19. CLOBETASOL [Concomitant]
  20. IVIG [Concomitant]
     Dosage: MONTHLY

REACTIONS (1)
  - Extravasation [Recovered/Resolved]
